FAERS Safety Report 20582684 (Version 2)
Quarter: 2022Q2

REPORT INFORMATION
  Report Type: Spontaneous
  Country: ES (occurrence: ES)
  Receive Date: 20220311
  Receipt Date: 20220406
  Transmission Date: 20220721
  Serious: Yes (Other)
  Sender: FDA-Public Use
  Company Number: ES-MYLANLABS-2022M1014176

PATIENT
  Age: 78 Year
  Sex: Female

DRUGS (11)
  1. SUNITINIB MALATE [Suspect]
     Active Substance: SUNITINIB MALATE
     Indication: Gastrointestinal stromal tumour
     Dosage: 37.5 MG, 1X/DAY (37.5 MILLIGRAM, QD)
     Route: 065
     Dates: start: 201210, end: 201307
  2. SUNITINIB MALATE [Suspect]
     Active Substance: SUNITINIB MALATE
     Dosage: 25 MG, DAILY
     Dates: start: 201307, end: 201404
  3. IMATINIB [Concomitant]
     Active Substance: IMATINIB
     Indication: Metastases to peritoneum
     Dosage: 800 MG, DAILY
     Dates: start: 201201, end: 201209
  4. IMATINIB [Concomitant]
     Active Substance: IMATINIB
     Indication: Gastrointestinal stromal tumour
     Dosage: 400 MG
     Dates: start: 201007, end: 201201
  5. IMATINIB [Concomitant]
     Active Substance: IMATINIB
     Dosage: 300 MG, DAILY
  6. SORAFENIB [Concomitant]
     Active Substance: SORAFENIB
     Indication: Gastrointestinal stromal tumour
     Dosage: 400 MG, 2X/DAY
     Dates: start: 201404, end: 201506
  7. SORAFENIB [Concomitant]
     Active Substance: SORAFENIB
     Dosage: 800 MG, DAILY
     Dates: start: 201404
  8. AYVAKIT [Concomitant]
     Active Substance: AVAPRITINIB
     Indication: Gastrointestinal stromal tumour
     Dosage: 300 MG, DAILY
     Dates: start: 201906
  9. REGORAFENIB [Concomitant]
     Active Substance: REGORAFENIB
     Indication: Disease progression
     Dosage: UNK
     Dates: start: 201605
  10. REGORAFENIB [Concomitant]
     Active Substance: REGORAFENIB
     Indication: Gastrointestinal stromal tumour
     Dosage: 160 MG, DAILY, 3 WEEKS-ON, 1 WEEK-OFF
     Dates: start: 201506
  11. REGORAFENIB [Concomitant]
     Active Substance: REGORAFENIB
     Dosage: 120 MG DAILY, 3 WEEKS-ON, 1 WEEK-OFF

REACTIONS (1)
  - Haematotoxicity [Recovering/Resolving]
